FAERS Safety Report 24095743 (Version 1)
Quarter: 2024Q3

REPORT INFORMATION
  Report Type: Spontaneous
  Country: US (occurrence: US)
  Receive Date: 20240716
  Receipt Date: 20240716
  Transmission Date: 20241016
  Serious: Yes (Other)
  Sender: PFIZER
  Company Number: US-PFIZER INC-PV202400091184

PATIENT
  Age: 76 Year
  Sex: Female
  Weight: 67.483 kg

DRUGS (1)
  1. IBRANCE [Suspect]
     Active Substance: PALBOCICLIB
     Indication: Breast cancer female
     Dosage: 125 MG, 28-DAY SUPPLY
     Dates: start: 20240619

REACTIONS (1)
  - Essential thrombocythaemia [Unknown]
